FAERS Safety Report 23112212 (Version 2)
Quarter: 2023Q4

REPORT INFORMATION
  Report Type: Spontaneous
  Country: US (occurrence: US)
  Receive Date: 20231026
  Receipt Date: 20231115
  Transmission Date: 20240109
  Serious: Yes (Other)
  Sender: FDA-Public Use
  Company Number: US-BRISTOL-MYERS SQUIBB COMPANY-2023-151947

PATIENT
  Age: 84 Year
  Sex: Female

DRUGS (1)
  1. ELIQUIS [Suspect]
     Active Substance: APIXABAN
     Indication: Product used for unknown indication
     Dosage: FREQUENCY: 1 TABLET TWICE DAILY
     Route: 048

REACTIONS (4)
  - Haemorrhage [Unknown]
  - Prothrombin level decreased [Unknown]
  - Post procedural haemorrhage [Unknown]
  - Contusion [Unknown]
